FAERS Safety Report 23270132 (Version 4)
Quarter: 2024Q2

REPORT INFORMATION
  Report Type: Report from Study
  Country: US (occurrence: US)
  Receive Date: 20231207
  Receipt Date: 20240408
  Transmission Date: 20240715
  Serious: Yes (Death, Other)
  Sender: FDA-Public Use
  Company Number: US-ASTELLAS-2023EU004953

PATIENT
  Sex: Male

DRUGS (10)
  1. ENZALUTAMIDE [Suspect]
     Active Substance: ENZALUTAMIDE
     Indication: Prostate cancer
     Route: 048
     Dates: start: 20231012, end: 20231222
  2. ABIRATERONE ACETATE [Concomitant]
     Active Substance: ABIRATERONE ACETATE
     Indication: Product used for unknown indication
     Dosage: 1000 MG, ONCE DAILY ON EMPTY STOMACH. 1 HR PRIOR TO MEAL OR 2 HRS AFTER
     Route: 048
  3. PREDNISONE [Concomitant]
     Active Substance: PREDNISONE
     Indication: Product used for unknown indication
     Route: 048
  4. ZYTIGA [Concomitant]
     Active Substance: ABIRATERONE ACETATE
     Indication: Product used for unknown indication
     Dosage: 1000 MG, ONCE DAILY (ON EMPTY STOMACH 1 HOUR BEFORE A MEAL OR AFTER 2 HOURS)
     Route: 048
  5. ZOLEDRONIC ACID [Concomitant]
     Active Substance: ZOLEDRONIC ACID
     Indication: Product used for unknown indication
     Dosage: 4 MG/5 ML VIAL SIG: INFUSE 4MG IV OVER 20 MINUTES, MONTHLY
     Route: 042
  6. LUPRON DEPOT [Concomitant]
     Active Substance: LEUPROLIDE ACETATE
     Indication: Product used for unknown indication
     Dosage: 22.5 MG, OTHER (EVERY 3 MONTHS)
     Route: 065
     Dates: end: 20231012
  7. VENOFER [Concomitant]
     Active Substance: IRON SUCROSE
     Indication: Product used for unknown indication
     Dosage: 100 MG/5 ML VIAL MG IRON/5 ML SIG: INFUSE 200 MG IV  WEEKLY FOR 4 WEEKS, ONCE WEEKLY
     Route: 042
  8. CYANOCOBALAMIN [Concomitant]
     Active Substance: CYANOCOBALAMIN
     Indication: Product used for unknown indication
     Dosage: UNK UNK, OTHER (DAILY X 7 DAYS WEEKLY X 4 WEEKS THEN MONTHLY THEREAFTER)
     Route: 058
  9. PRAVACHOL [Concomitant]
     Active Substance: PRAVASTATIN SODIUM
     Indication: Product used for unknown indication
     Route: 065
  10. RECLAST [Concomitant]
     Active Substance: ZOLEDRONIC ACID
     Indication: Product used for unknown indication
     Dosage: UNK UNK, UNKNOWN FREQ.
     Route: 065
     Dates: end: 20231012

REACTIONS (10)
  - Death [Fatal]
  - Depressed level of consciousness [Unknown]
  - Confusional state [Unknown]
  - Asthenia [Unknown]
  - Condition aggravated [Unknown]
  - Decreased appetite [Unknown]
  - Tremor [Unknown]
  - General physical health deterioration [Unknown]
  - Dehydration [Unknown]
  - Therapy non-responder [Unknown]

NARRATIVE: CASE EVENT DATE: 20240101
